FAERS Safety Report 15046473 (Version 3)
Quarter: 2018Q4

REPORT INFORMATION
  Report Type: Report from Study
  Country: US (occurrence: US)
  Receive Date: 20180621
  Receipt Date: 20181108
  Transmission Date: 20190204
  Serious: No
  Sender: FDA-Public Use
  Company Number: US-ACTELION-A-NJ2018-169795

PATIENT
  Age: 62 Year
  Sex: Male

DRUGS (4)
  1. METHADONE [Concomitant]
     Active Substance: METHADONE HYDROCHLORIDE
     Dosage: 80 MG, QD
     Dates: start: 2013
  2. XANAX [Concomitant]
     Active Substance: ALPRAZOLAM
     Dosage: 0.5 MG, BID
     Dates: start: 2008
  3. OPSUMIT [Suspect]
     Active Substance: MACITENTAN
     Indication: PULMONARY ARTERIAL HYPERTENSION
     Dosage: 10 MG, QD
     Route: 048
     Dates: start: 20180312, end: 20180417
  4. GABAPENTIN. [Concomitant]
     Active Substance: GABAPENTIN
     Dosage: 100 MG, QD
     Dates: start: 2015

REACTIONS (10)
  - Dry mouth [Not Recovered/Not Resolved]
  - Dehydration [Not Recovered/Not Resolved]
  - Sleep disorder [Not Recovered/Not Resolved]
  - Constipation [Not Recovered/Not Resolved]
  - Blood bilirubin [Unknown]
  - Productive cough [Not Recovered/Not Resolved]
  - Aspartate aminotransferase increased [Unknown]
  - Movement disorder [Not Recovered/Not Resolved]
  - Dyspnoea [Recovered/Resolved]
  - Fatigue [Not Recovered/Not Resolved]

NARRATIVE: CASE EVENT DATE: 201803
